FAERS Safety Report 8968840 (Version 1)
Quarter: 2012Q4

REPORT INFORMATION
  Report Type: Spontaneous
  Country: BR (occurrence: None)
  Receive Date: 20121207
  Receipt Date: 20121207
  Transmission Date: 20130627
  Serious: Yes (Hospitalization)
  Sender: FDA-Public Use
  Company Number: DSU-2012-09489

PATIENT
  Age: 70 Year
  Sex: Male

DRUGS (1)
  1. OLMETEC [Suspect]
     Indication: DRUG USE FOR UNKNOWN INDICATION
     Dosage: 20 mg (20 mg, qd, per oral
     Route: 048
     Dates: start: 20120619, end: 20121123

REACTIONS (3)
  - Cardiac disorder [None]
  - Renal failure [None]
  - Oedema peripheral [None]
